FAERS Safety Report 11010593 (Version 1)
Quarter: 2015Q2

REPORT INFORMATION
  Report Type: Spontaneous
  Country: US (occurrence: None)
  Receive Date: 20150409
  Receipt Date: 20150409
  Transmission Date: 20150821
  Serious: Yes (Disabling)
  Sender: FDA-Public Use
  Company Number: None

PATIENT
  Age: 89 Year
  Sex: Female
  Weight: 54.43 kg

DRUGS (10)
  1. CELEBREX [Concomitant]
     Active Substance: CELECOXIB
  2. CELECOXIB. [Suspect]
     Active Substance: CELECOXIB
     Indication: BACK PAIN
     Dosage: 1 DAILY
     Route: 048
     Dates: start: 20150116, end: 20150320
  3. METOPROLOL [Concomitant]
     Active Substance: METOPROLOL
  4. ONE  A DAY [Concomitant]
  5. NITRO PATCH [Concomitant]
     Active Substance: NITROGLYCERIN
  6. ANALGRELIDE [Concomitant]
  7. CELECOXIB. [Suspect]
     Active Substance: CELECOXIB
     Indication: SCOLIOSIS
     Dosage: 1 DAILY
     Route: 048
     Dates: start: 20150116, end: 20150320
  8. HYDROCO/APAP [Concomitant]
     Active Substance: ACETAMINOPHEN\HYDROCODONE
  9. D3 [Concomitant]
     Active Substance: 25-HYDROXYCHOLECALCIFEROL, 5-TRANS-
  10. BABY ASPIRIN [Concomitant]
     Active Substance: ASPIRIN

REACTIONS (3)
  - Pain [None]
  - Rash [None]
  - Product substitution issue [None]

NARRATIVE: CASE EVENT DATE: 20150320
